FAERS Safety Report 15256529 (Version 4)
Quarter: 2018Q4

REPORT INFORMATION
  Report Type: Report from Study
  Country: FR (occurrence: FR)
  Receive Date: 20180808
  Receipt Date: 20181005
  Transmission Date: 20190204
  Serious: Yes (Death, Hospitalization, Other)
  Sender: FDA-Public Use
  Company Number: FR-SHIRE-FR201828813

PATIENT

DRUGS (10)
  1. IMMUNOGLOBULIN (IMMUNOGLOBULIN HUMAN NORMAL) [Concomitant]
     Active Substance: HUMAN IMMUNOGLOBULIN G
     Indication: IMMUNE-MEDIATED NECROTISING MYOPATHY
  2. CERTICAN [Concomitant]
     Active Substance: EVEROLIMUS
     Indication: PRODUCT USED FOR UNKNOWN INDICATION
  3. CYMEVAN [Concomitant]
     Active Substance: GANCICLOVIR
     Indication: CYTOMEGALOVIRUS INFECTION
  4. FOSCARNET [Concomitant]
     Active Substance: FOSCARNET
     Indication: CYTOMEGALOVIRUS CHORIORETINITIS
  5. MARIBAVIR [Suspect]
     Active Substance: MARIBAVIR
     Indication: PRODUCT USED FOR UNKNOWN INDICATION
     Dosage: UNK
     Route: 065
     Dates: start: 20180710, end: 20180714
  6. WELLVONE [Concomitant]
     Active Substance: ATOVAQUONE
     Indication: TOXOPLASMOSIS PROPHYLAXIS
  7. CELLCEPT [Concomitant]
     Active Substance: MYCOPHENOLATE MOFETIL\MYCOPHENOLATE MOFETIL HYDROCHLORIDE
     Indication: PRODUCT USED FOR UNKNOWN INDICATION
  8. TAHOR [Concomitant]
     Active Substance: ATORVASTATIN CALCIUM
     Indication: HYPERCHOLESTEROLAEMIA
  9. SOLU-MEDROL [Concomitant]
     Active Substance: METHYLPREDNISOLONE SODIUM SUCCINATE
     Indication: IMMUNE-MEDIATED NECROTISING MYOPATHY
  10. ROVALCYTE [Concomitant]
     Active Substance: VALGANCICLOVIR HYDROCHLORIDE
     Indication: CYTOMEGALOVIRUS INFECTION

REACTIONS (2)
  - Multiple organ dysfunction syndrome [Fatal]
  - Shock haemorrhagic [Fatal]
